FAERS Safety Report 5844511-0 (Version None)
Quarter: 2008Q3

REPORT INFORMATION
  Report Type: 
  Country: None (occurrence: None)
  Receive Date: 20080812
  Receipt Date: 20080729
  Transmission Date: 20090109
  Serious: Yes (Hospitalization)
  Sender: FDA-Public Use
  Company Number: 237178J08USA

PATIENT
  Age: 61 Year
  Sex: Female
  Weight: 73.4827 kg

DRUGS (4)
  1. REBIF [Suspect]
     Indication: MULTIPLE SCLEROSIS
     Dosage: 44 MCG, 3 IN 1 WEEKS, SUBCUTANEOUS
     Route: 058
     Dates: start: 20040128
  2. UNSPECIFIED MEDICATIONS (ALL OTHER THERAPEUTIC PRODUCTS) [Concomitant]
  3. UNSPECIFIED CHOLESTEROL MEDICATION (ALL OTHER THERAPEUTIC PRODUCTS) [Concomitant]
  4. VITAMIN E OIL (TOCOPHEROL /00110501/) [Concomitant]

REACTIONS (3)
  - DYSPHAGIA [None]
  - EXOSTOSIS [None]
  - SPINAL DISORDER [None]
